FAERS Safety Report 5627208-1 (Version None)
Quarter: 2008Q1

REPORT INFORMATION
  Report Type: 
  Country: None (occurrence: None)
  Receive Date: 20080212
  Receipt Date: 20080212
  Transmission Date: 20080703
  Serious: Yes (Life-Threatening, Hospitalization)
  Sender: FDA-Public Use
  Company Number: None

PATIENT
  Age: 50 Year
  Sex: Female
  Weight: 63.5036 kg

DRUGS (1)
  1. CHANTIX [Suspect]
     Indication: SMOKING CESSATION THERAPY
     Dosage: 1MG 2XD PO
     Route: 048
     Dates: start: 20080104, end: 20080118

REACTIONS (2)
  - CEREBROVASCULAR DISORDER [None]
  - HAEMORRHAGE INTRACRANIAL [None]
